FAERS Safety Report 7410111-4 (Version None)
Quarter: 2011Q2

REPORT INFORMATION
  Report Type: 
  Country: None (occurrence: None)
  Receive Date: 20110412
  Receipt Date: 20110331
  Transmission Date: 20111010
  Serious: Yes (Life-Threatening, Hospitalization)
  Sender: FDA-Public Use
  Company Number: ES-BAYER-2011-030033

PATIENT
  Age: 90 Year
  Sex: Female

DRUGS (6)
  1. ASPIRIN [Suspect]
     Indication: PROPHYLAXIS
     Dosage: UNK
     Route: 048
     Dates: start: 20091101, end: 20100411
  2. PLUSVENT [Concomitant]
     Route: 055
  3. HYDROCHLOROTHIAZIDE W/VALSARTAN [Suspect]
     Indication: HYPERTENSION
     Dosage: UNK
     Route: 048
     Dates: start: 20081101, end: 20100411
  4. SERC [Concomitant]
     Route: 048
     Dates: start: 20100331, end: 20100411
  5. AIRTAL [Suspect]
     Indication: PAIN
     Dosage: UNK
     Route: 048
     Dates: start: 20100331, end: 20100409
  6. OMEPRAZOLE [Suspect]
     Indication: PROPHYLAXIS
     Route: 048

REACTIONS (1)
  - THROMBOCYTOPENIA [None]
